FAERS Safety Report 11247327 (Version 1)
Quarter: 2015Q3

REPORT INFORMATION
  Report Type: Spontaneous
  Country: US (occurrence: None)
  Receive Date: 20150706
  Receipt Date: 20150706
  Transmission Date: 20151125
  Serious: Yes (Disabling)
  Sender: FDA-Public Use
  Company Number: None

PATIENT
  Age: 51 Year
  Sex: Male
  Weight: 92.99 kg

DRUGS (5)
  1. DULOXETINE. [Suspect]
     Active Substance: DULOXETINE
     Indication: MULTIPLE SCLEROSIS
     Dosage: TAKEN BY MOUTH
     Route: 048
     Dates: start: 20150215, end: 20150515
  2. LYRICA [Concomitant]
     Active Substance: PREGABALIN
  3. CYMBALTA [Concomitant]
     Active Substance: DULOXETINE HYDROCHLORIDE
  4. DULOXETINE 60 MG  TEVA [Suspect]
     Active Substance: DULOXETINE
     Indication: MULTIPLE SCLEROSIS
     Dosage: 1
     Route: 048
     Dates: start: 20150315, end: 20150702
  5. MULTIPLE MEDS [Concomitant]

REACTIONS (8)
  - Depression [None]
  - Drug withdrawal syndrome [None]
  - Fatigue [None]
  - Paraesthesia [None]
  - Pain [None]
  - Asthenia [None]
  - Drug ineffective [None]
  - Product substitution issue [None]

NARRATIVE: CASE EVENT DATE: 20150215
